FAERS Safety Report 7358564-4 (Version None)
Quarter: 2011Q1

REPORT INFORMATION
  Report Type: 
  Country: None (occurrence: None)
  Receive Date: 20110317
  Receipt Date: 20110304
  Transmission Date: 20110831
  Serious: Yes (Other)
  Sender: FDA-Public Use
  Company Number: GB-WATSON-2011-03078

PATIENT
  Age: 83 Year
  Sex: Female

DRUGS (2)
  1. CLARITHROMYCIN [Suspect]
     Indication: PNEUMONIA
     Dosage: UNK
  2. SIMVASTATIN [Suspect]
     Indication: HYPERLIPIDAEMIA
     Dosage: UNK

REACTIONS (6)
  - MYOPATHY [None]
  - DEHYDRATION [None]
  - DRUG INTERACTION [None]
  - MYALGIA [None]
  - HYPERCALCAEMIA [None]
  - MUSCULAR WEAKNESS [None]
